FAERS Safety Report 8068360-0 (Version None)
Quarter: 2012Q1

REPORT INFORMATION
  Report Type: 
  Country: None (occurrence: None)
  Receive Date: 20120124
  Receipt Date: 20111020
  Transmission Date: 20120608
  Serious: No
  Sender: FDA-Public Use
  Company Number: US-AMGEN-USASP2011054423

PATIENT
  Age: 78 Year
  Sex: Female

DRUGS (11)
  1. GINKO BILOBA [Concomitant]
     Dosage: UNK
  2. FOLIC ACID [Concomitant]
     Dosage: UNK
  3. VITAMIN D [Concomitant]
     Dosage: UNK
  4. PROLIA [Suspect]
     Indication: OSTEOPOROSIS POSTMENOPAUSAL
     Dosage: 60 MG, UNK
     Dates: start: 20110101
  5. FISH OIL [Concomitant]
     Dosage: UNK
  6. METOPROLOL TARTRATE [Concomitant]
     Dosage: UNK
  7. VITAMIN E [Concomitant]
     Dosage: UNK
  8. FIBER CHOICE PLUS CALCIUM [Concomitant]
     Dosage: UNK
  9. VITAMIN K TAB [Concomitant]
     Dosage: UNK
  10. POTASSIUM CHLORIDE [Concomitant]
     Dosage: UNK
  11. ONE A DAY [Concomitant]
     Dosage: UNK

REACTIONS (6)
  - JOINT STIFFNESS [None]
  - RASH ERYTHEMATOUS [None]
  - CONTUSION [None]
  - NEPHROLITHIASIS [None]
  - RASH PRURITIC [None]
  - PAIN [None]
